FAERS Safety Report 20031280 (Version 1)
Quarter: 2021Q4

REPORT INFORMATION
  Report Type: Spontaneous
  Country: AU (occurrence: AU)
  Receive Date: 20211103
  Receipt Date: 20211103
  Transmission Date: 20220303
  Serious: Yes (Other)
  Sender: FDA-Public Use
  Company Number: AU-MYLANLABS-2021M1079975

PATIENT
  Age: 53 Year
  Sex: Male

DRUGS (4)
  1. FLUOROURACIL [Suspect]
     Active Substance: FLUOROURACIL
     Indication: Adenocarcinoma pancreas
     Dosage: UNK UNK, CYCLE, SIX CYCLES OF NEOADJUVANT CHEMOTHERAPY WITH FOLFIRINOX ??..
     Route: 065
  2. IRINOTECAN [Suspect]
     Active Substance: IRINOTECAN
     Indication: Adenocarcinoma pancreas
     Dosage: UNK UNK, CYCLE,SIX CYCLES OF NEOADJUVANT CHEMOTHERAPY WITH FOLFIRINOX ??.
     Route: 065
  3. OXALIPLATIN [Suspect]
     Active Substance: OXALIPLATIN
     Indication: Adenocarcinoma pancreas
     Dosage: , UNK UNK, CYCLE, SIX CYCLES OF NEOADJUVANT CHEMOTHERAPY WITH FOLFIRINOX ??.
     Route: 065
  4. LEUCOVORIN [Suspect]
     Active Substance: LEUCOVORIN
     Indication: Adenocarcinoma pancreas
     Dosage: UNK UNK, CYCLE, SIX CYCLES OF NEOADJUVANT CHEMOTHERAPY WITH FOLFIRINOX ???
     Route: 065

REACTIONS (1)
  - Adrenal cortex necrosis [Unknown]
